FAERS Safety Report 10544286 (Version 5)
Quarter: 2015Q2

REPORT INFORMATION
  Report Type: Report from Study
  Country: US (occurrence: US)
  Receive Date: 20141027
  Receipt Date: 20150521
  Transmission Date: 20150821
  Serious: Yes (Death, Hospitalization)
  Sender: FDA-Public Use
  Company Number: US-ACTELION-A-US2014-105450

PATIENT
  Age: 54 Year
  Sex: Male

DRUGS (1)
  1. MACITENTAN [Suspect]
     Active Substance: MACITENTAN
     Indication: PORTAL HYPERTENSION
     Dosage: 10 MG, UNK
     Route: 048
     Dates: start: 20140805

REACTIONS (4)
  - Death [Fatal]
  - Pulmonary arterial hypertension [Unknown]
  - Ammonia increased [Unknown]
  - Fluid retention [Unknown]

NARRATIVE: CASE EVENT DATE: 20140915
